FAERS Safety Report 7374700-8 (Version None)
Quarter: 2011Q1

REPORT INFORMATION
  Report Type: 
  Country: None (occurrence: None)
  Receive Date: 20110325
  Receipt Date: 20100809
  Transmission Date: 20110831
  Serious: No
  Sender: FDA-Public Use
  Company Number: US-MYLANLABS-2010S1014619

PATIENT
  Age: 53 Year
  Sex: Male
  Weight: 81.65 kg

DRUGS (5)
  1. FENTANYL-100 [Suspect]
     Indication: OESOPHAGEAL PAIN
     Dosage: Q72H
     Route: 062
     Dates: start: 20100201, end: 20100723
  2. FENTANYL-100 [Suspect]
     Dosage: Q72H
     Route: 062
     Dates: start: 20100201, end: 20100723
  3. FENTANYL-100 [Suspect]
     Dosage: Q72H
     Route: 062
     Dates: start: 20100201, end: 20100723
  4. PRILOSEC [Concomitant]
     Indication: GASTROOESOPHAGEAL REFLUX DISEASE
     Dates: start: 20050101
  5. FENTANYL-100 [Suspect]
     Indication: ABDOMINAL PAIN UPPER
     Dosage: Q72H
     Route: 062
     Dates: start: 20100201, end: 20100723

REACTIONS (6)
  - OESOPHAGEAL PAIN [None]
  - DIZZINESS [None]
  - ABDOMINAL PAIN UPPER [None]
  - DRUG INEFFECTIVE [None]
  - DRUG WITHDRAWAL SYNDROME [None]
  - EXPIRED DRUG ADMINISTERED [None]
